FAERS Safety Report 14441887 (Version 1)
Quarter: 2018Q1

REPORT INFORMATION
  Report Type: Report from Study
  Country: JP (occurrence: JP)
  Receive Date: 20180125
  Receipt Date: 20180125
  Transmission Date: 20180509
  Serious: Yes (Other)
  Sender: FDA-Public Use
  Company Number: JP-MYLANLABS-2018M1005235

PATIENT
  Sex: Female

DRUGS (2)
  1. CAPECITABINE. [Suspect]
     Active Substance: CAPECITABINE
     Indication: BREAST CANCER METASTATIC
     Dosage: IN 2 WEEKS-ON AND 1 WEEK-OFF SCHEDULE; IN A 21 DAY CYCLE
     Route: 048
  2. ERIBULIN [Suspect]
     Active Substance: ERIBULIN
     Indication: BREAST CANCER METASTATIC
     Dosage: 1.4 MG/M2 ON DAYS 1 AND 8; IN A 21 DAY CYCLE
     Route: 042

REACTIONS (3)
  - Blood phosphorus increased [Unknown]
  - Blood creatinine increased [Unknown]
  - Hyperuricaemia [Unknown]
